FAERS Safety Report 21229054 (Version 3)
Quarter: 2022Q3

REPORT INFORMATION
  Report Type: Report from Study
  Country: TR (occurrence: TR)
  Receive Date: 20220818
  Receipt Date: 20220928
  Transmission Date: 20221026
  Serious: Yes (Death)
  Sender: FDA-Public Use
  Company Number: TR-ABBVIE-22K-161-4507545-00

PATIENT
  Age: 68 Year
  Sex: Male
  Weight: 73 kg

DRUGS (7)
  1. CARBIDOPA\LEVODOPA [Suspect]
     Active Substance: CARBIDOPA\LEVODOPA
     Indication: Parkinson^s disease
     Dosage: MORNING DOSE (ML): 4.50 CONTINUOUS DOSE (ML): 3.00 EXTRA DOSE (ML): 1.00
     Route: 050
     Dates: start: 20190416
  2. CARBIDOPA\LEVODOPA [Suspect]
     Active Substance: CARBIDOPA\LEVODOPA
  3. Metoprolol (BELOC) [Concomitant]
     Indication: Coronary artery disease
     Dosage: 50 MILLIGRAM
     Route: 048
     Dates: start: 2016
  4. ASPIRIN [Concomitant]
     Active Substance: ASPIRIN
     Indication: Coronary artery disease
     Route: 048
     Dates: start: 2016
  5. Amantadine (PK MERZ) [Concomitant]
     Indication: Parkinson^s disease
     Dosage: 300 MILLIGRAM
     Route: 048
     Dates: start: 202001
  6. Vildagliptin (GALVUS MET) [Concomitant]
     Indication: Diabetes mellitus
     Dosage: 2000 MILLIGRAM
     Route: 048
     Dates: start: 2016
  7. Ramipril (DELIX) [Concomitant]
     Indication: Coronary artery disease
     Dosage: 2.5 MG
     Route: 048
     Dates: start: 2016

REACTIONS (1)
  - Cardiac arrest [Fatal]

NARRATIVE: CASE EVENT DATE: 20220812
